FAERS Safety Report 9748463 (Version 1)
Quarter: 2013Q4

REPORT INFORMATION
  Report Type: Spontaneous
  Country: US (occurrence: US)
  Receive Date: 20131212
  Receipt Date: 20131212
  Transmission Date: 20140711
  Serious: Yes (Other)
  Sender: FDA-Public Use
  Company Number: US-BAYER-2013-149025

PATIENT
  Age: 83 Year
  Sex: Female
  Weight: 52.61 kg

DRUGS (1)
  1. ALEVE TABLET [Suspect]
     Indication: ARTHRITIS
     Dosage: 2 DF, PRN
     Route: 048
     Dates: start: 2013, end: 201311

REACTIONS (2)
  - Herpes zoster [Not Recovered/Not Resolved]
  - Drug ineffective [None]
